FAERS Safety Report 8738966 (Version 2)
Quarter: 2012Q4

REPORT INFORMATION
  Report Type: 
  Country: CA (occurrence: CA)
  Receive Date: 20120823
  Receipt Date: 20120911
  Transmission Date: 20130627
  Serious: Yes (Death, Hospitalization, Other)
  Sender: FDA-Public Use
  Company Number: PHHY2010CA86148

PATIENT
  Age: 86 Year
  Sex: Male

DRUGS (4)
  1. EXJADE [Suspect]
     Indication: MYELODYSPLASTIC SYNDROME
     Dosage: 1500 mg, QD
     Route: 048
     Dates: start: 201011, end: 20120628
  2. OMEPRAZOLE [Concomitant]
     Dosage: 20 mg, QD
  3. CITALOPRAM [Concomitant]
     Indication: DEPRESSION
  4. TRANSFUSIONS [Concomitant]

REACTIONS (13)
  - Death [Fatal]
  - Road traffic accident [Unknown]
  - Pneumonia [Unknown]
  - Confusional state [Unknown]
  - Dementia [Unknown]
  - Acute leukaemia [Unknown]
  - Influenza [Unknown]
  - Muscle strain [Not Recovered/Not Resolved]
  - Nasopharyngitis [Unknown]
  - Cough [Unknown]
  - Pruritus [Not Recovered/Not Resolved]
  - Back pain [Not Recovered/Not Resolved]
  - Fatigue [Unknown]
